FAERS Safety Report 20694677 (Version 1)
Quarter: 2022Q2

REPORT INFORMATION
  Report Type: Spontaneous
  Country: US (occurrence: US)
  Receive Date: 20220411
  Receipt Date: 20220411
  Transmission Date: 20220721
  Serious: No
  Sender: FDA-Public Use
  Company Number: US-SA-SAC20220408000598

PATIENT
  Sex: Male

DRUGS (3)
  1. DUPIXENT [Suspect]
     Active Substance: DUPILUMAB
     Route: 058
     Dates: start: 202201
  2. METHOTREXATE [Concomitant]
     Active Substance: METHOTREXATE
  3. MODERNA COVID-19 VACCINE [Suspect]
     Active Substance: ELASOMERAN

REACTIONS (3)
  - Ear pruritus [Recovered/Resolved]
  - Otorrhoea [Recovered/Resolved]
  - Eczema [Unknown]
